FAERS Safety Report 5111634-3 (Version None)
Quarter: 2006Q3

REPORT INFORMATION
  Report Type: 
  Country: None (occurrence: None)
  Receive Date: 20060922
  Receipt Date: 20060525
  Transmission Date: 20061208
  Serious: Yes (Hospitalization, Other)
  Sender: FDA-Public Use
  Company Number: US-BRISTOL-MYERS SQUIBB COMPANY-13391024

PATIENT
  Age: 77 Year
  Sex: Male

DRUGS (5)
  1. DASATINIB [Suspect]
     Indication: CHRONIC MYELOID LEUKAEMIA
     Route: 048
     Dates: start: 20060428, end: 20060519
  2. METOPROLOL [Concomitant]
  3. CAPTOPRIL [Concomitant]
  4. POTASSIUM CHLORIDE [Concomitant]
  5. LASIX [Concomitant]

REACTIONS (6)
  - ANAEMIA [None]
  - ATRIAL FIBRILLATION [None]
  - LOBAR PNEUMONIA [None]
  - PLEURAL EFFUSION [None]
  - PNEUMONIA [None]
  - THROMBOCYTOPENIA [None]
